FAERS Safety Report 9248716 (Version 1)
Quarter: 2013Q2

REPORT INFORMATION
  Report Type: Report from Study
  Country: US (occurrence: US)
  Receive Date: 20130423
  Receipt Date: 20130423
  Transmission Date: 20140414
  Serious: Yes (Hospitalization, Other)
  Sender: FDA-Public Use
  Company Number: US-ROCHE-1212834

PATIENT
  Age: 53 Year
  Sex: Female
  Weight: 68.55 kg

DRUGS (4)
  1. PEGASYS [Suspect]
     Indication: HEPATITIS C
     Route: 058
     Dates: start: 20130211, end: 20130321
  2. INCIVEK [Suspect]
     Indication: HEPATITIS C
     Route: 048
     Dates: start: 20130211, end: 20130221
  3. COPEGUS [Suspect]
     Indication: HEPATITIS C
     Route: 048
     Dates: start: 20130211, end: 20130221
  4. INTERFERON ALFA-2A [Concomitant]

REACTIONS (10)
  - Clostridium difficile infection [Recovering/Resolving]
  - Dyspnoea [Unknown]
  - Dizziness [Unknown]
  - Fatigue [Unknown]
  - Visual impairment [Recovering/Resolving]
  - Anxiety [Unknown]
  - Anaemia [Unknown]
  - Diarrhoea [Recovering/Resolving]
  - Retinal exudates [Unknown]
  - Pancytopenia [Recovering/Resolving]
